FAERS Safety Report 19077087 (Version 1)
Quarter: 2021Q1

REPORT INFORMATION
  Report Type: Spontaneous
  Country: US (occurrence: US)
  Receive Date: 20210330
  Receipt Date: 20210330
  Transmission Date: 20210420
  Serious: No
  Sender: FDA-Public Use
  Company Number: None

PATIENT
  Age: 31 Year
  Sex: Female
  Weight: 58.5 kg

DRUGS (2)
  1. NEUTROGENA RAPID CLEAR STUBBORN ACNE CLEANSER [Suspect]
     Active Substance: BENZOYL PEROXIDE
     Indication: ACNE
     Dates: start: 20210325, end: 20210329
  2. VIT D [Concomitant]
     Active Substance: VITAMIN D NOS

REACTIONS (4)
  - Pruritus [None]
  - Eye swelling [None]
  - Swelling face [None]
  - Swelling [None]

NARRATIVE: CASE EVENT DATE: 20210329
